FAERS Safety Report 12179009 (Version 1)
Quarter: 2016Q1

REPORT INFORMATION
  Report Type: Spontaneous
  Country: US (occurrence: None)
  Receive Date: 20160314
  Receipt Date: 20160314
  Transmission Date: 20160526
  Serious: No
  Sender: FDA-Public Use
  Company Number: None

PATIENT
  Age: 54 Year
  Sex: Female
  Weight: 70 kg

DRUGS (5)
  1. CIBLEX 15MG DRUGTECH RECALCINE [Suspect]
     Active Substance: MIRTAZAPINE
     Indication: DEPRESSION
     Dosage: 1 PILL AT BEDTIME TAKEN BY MOUTH
     Route: 048
     Dates: start: 20131101, end: 20151101
  2. PROBIOTICS [Concomitant]
     Active Substance: PROBIOTICS NOS
  3. PITAVASTATIN [Concomitant]
     Active Substance: PITAVASTATIN
  4. OMEPRAZOL [Concomitant]
     Active Substance: OMEPRAZOLE
  5. CELECOXIB. [Concomitant]
     Active Substance: CELECOXIB

REACTIONS (4)
  - Somnolence [None]
  - Drug withdrawal syndrome [None]
  - Increased appetite [None]
  - Irritability [None]
